FAERS Safety Report 22136265 (Version 1)
Quarter: 2023Q1

REPORT INFORMATION
  Report Type: Spontaneous
  Country: US (occurrence: None)
  Receive Date: 20230323
  Receipt Date: 20230323
  Transmission Date: 20230417
  Serious: No
  Sender: FDA-Public Use
  Company Number: None

PATIENT
  Age: 63 Year
  Sex: Male

DRUGS (1)
  1. CAPECITABINE [Suspect]
     Active Substance: CAPECITABINE
     Dosage: OTHER QUANTITY : 1500MG, 2000MG;?FREQUENCY : AS DIRECTED;?
     Route: 048

REACTIONS (3)
  - Dry mouth [None]
  - Chills [None]
  - Nonspecific reaction [None]

NARRATIVE: CASE EVENT DATE: 20230301
